FAERS Safety Report 4926624-0 (Version None)
Quarter: 2006Q1

REPORT INFORMATION
  Report Type: 
  Country: None (occurrence: None)
  Receive Date: 20060228
  Receipt Date: 20050512
  Transmission Date: 20060701
  Serious: No
  Sender: FDA-Public Use
  Company Number: US-GLAXOSMITHKLINE-A0558354A

PATIENT
  Sex: Female

DRUGS (5)
  1. LAMICTAL [Suspect]
     Indication: EPILEPSY
     Dosage: 100MG TWICE PER DAY
     Route: 048
  2. ZETIA [Concomitant]
  3. GEODON [Concomitant]
  4. REMERON [Concomitant]
  5. TRICOR [Concomitant]

REACTIONS (1)
  - BLOOD HOMOCYSTEINE INCREASED [None]
